FAERS Safety Report 4958903-5 (Version None)
Quarter: 2006Q1

REPORT INFORMATION
  Report Type: 
  Country: None (occurrence: None)
  Receive Date: 20060324
  Receipt Date: 20060228
  Transmission Date: 20060701
  Serious: Yes (Disabling)
  Sender: FDA-Public Use
  Company Number: 384576

PATIENT
  Age: 22 Year
  Sex: Male
  Weight: 76.2 kg

DRUGS (1)
  1. ACCUTANE [Suspect]
     Indication: ACNE
     Dosage: ORAL
     Route: 048
     Dates: start: 19880615

REACTIONS (78)
  - ABNORMAL BEHAVIOUR [None]
  - ABSCESS [None]
  - ACCIDENT AT WORK [None]
  - AGITATION [None]
  - ALCOHOLISM [None]
  - ANAL FISTULA [None]
  - ANAL ULCER [None]
  - ANGER [None]
  - ANHEDONIA [None]
  - ANOREXIA [None]
  - ANXIETY [None]
  - ARTHRALGIA [None]
  - ARTHRITIS [None]
  - ASTHENIA [None]
  - BACK INJURY [None]
  - BIPOLAR DISORDER [None]
  - BLOOD PRESSURE INCREASED [None]
  - BRONCHITIS ACUTE [None]
  - CATARACT [None]
  - CELLULITIS [None]
  - CHRONIC FATIGUE SYNDROME [None]
  - COLITIS [None]
  - COUGH [None]
  - CROHN'S DISEASE [None]
  - DEPRESSION [None]
  - DRUG ABUSER [None]
  - DRUG DOSE OMISSION [None]
  - DRUG EFFECT DECREASED [None]
  - DRUG INEFFECTIVE [None]
  - ERYTHEMA [None]
  - FATIGUE [None]
  - FISTULA [None]
  - GASTRITIS VIRAL [None]
  - GASTROINTESTINAL DISORDER [None]
  - HAEMATOCHEZIA [None]
  - HAEMORRHOIDS [None]
  - ILEAL ULCER [None]
  - IMPAIRED WORK ABILITY [None]
  - INFLAMMATION [None]
  - INFLAMMATORY BOWEL DISEASE [None]
  - INFLUENZA LIKE ILLNESS [None]
  - INJURY [None]
  - INSOMNIA [None]
  - INTESTINAL HAEMORRHAGE [None]
  - INTESTINAL ULCER [None]
  - IRRITABLE BOWEL SYNDROME [None]
  - JOINT RANGE OF MOTION DECREASED [None]
  - LOSS OF EMPLOYMENT [None]
  - MIDDLE INSOMNIA [None]
  - MOOD SWINGS [None]
  - MULTI-ORGAN DISORDER [None]
  - MUSCULOSKELETAL CHEST PAIN [None]
  - MYOFASCIAL PAIN SYNDROME [None]
  - NASOPHARYNGITIS [None]
  - NAUSEA [None]
  - NIGHT SWEATS [None]
  - PAIN [None]
  - PAIN IN EXTREMITY [None]
  - PERINEAL FISTULA [None]
  - POLYP [None]
  - PRODUCTIVE COUGH [None]
  - PULMONARY CONGESTION [None]
  - PYREXIA [None]
  - RASH [None]
  - RECTAL FISSURE [None]
  - RECTAL HAEMORRHAGE [None]
  - RECTAL POLYP [None]
  - REFUSAL OF TREATMENT BY PATIENT [None]
  - ROAD TRAFFIC ACCIDENT [None]
  - SKIN LACERATION [None]
  - SPUTUM DISCOLOURED [None]
  - STRESS [None]
  - SUICIDAL IDEATION [None]
  - THERAPY NON-RESPONDER [None]
  - TOOTH INJURY [None]
  - VOMITING [None]
  - WEIGHT DECREASED [None]
  - WHITE BLOOD CELL COUNT INCREASED [None]
